FAERS Safety Report 9556864 (Version 2)
Quarter: 2013Q4

REPORT INFORMATION
  Report Type: Spontaneous
  Country: FR (occurrence: FR)
  Receive Date: 20130926
  Receipt Date: 20131114
  Transmission Date: 20140711
  Serious: Yes (Hospitalization)
  Sender: FDA-Public Use
  Company Number: FR-SANOFI-AVENTIS-2013SA093029

PATIENT
  Age: 19 Year
  Sex: Female

DRUGS (12)
  1. RIFADINE [Suspect]
     Indication: SEPSIS
     Dosage: STRENGTH : 600 MG?FORM: POWDER AND SOLVANT FOR INFUSION
     Route: 042
     Dates: start: 20130806, end: 20130822
  2. ORBENINE [Suspect]
     Indication: SEPSIS
     Route: 042
     Dates: start: 20130806, end: 20130822
  3. CEFOTAXIME SODIUM [Concomitant]
     Indication: SEPSIS
     Dates: start: 20130802, end: 20130805
  4. VANCOMYCIN [Concomitant]
     Indication: SEPSIS
     Dates: start: 20130802, end: 20130806
  5. GENTAMICIN SULFATE [Concomitant]
     Route: 042
     Dates: start: 20130802, end: 20130805
  6. PERFALGAN [Concomitant]
     Indication: PAIN
     Route: 042
     Dates: start: 20130901
  7. FUNGIZONE [Concomitant]
     Dates: start: 20130819
  8. LOVENOX [Concomitant]
     Route: 058
     Dates: start: 20130805
  9. LEVOFLOXACIN [Concomitant]
     Route: 042
     Dates: start: 20130822, end: 20130901
  10. CLINDAMYCIN HYDROCHLORIDE [Concomitant]
     Dates: start: 20130822, end: 20130901
  11. TAVANIC [Concomitant]
     Dates: start: 20130901
  12. DALACIN [Concomitant]
     Route: 048
     Dates: start: 20130901

REACTIONS (1)
  - Pancytopenia [Recovered/Resolved]
